FAERS Safety Report 4370691-2 (Version None)
Quarter: 2004Q2

REPORT INFORMATION
  Report Type: 
  Country: None (occurrence: None)
  Receive Date: 20040601
  Receipt Date: 20040525
  Transmission Date: 20050107
  Serious: Yes (Death)
  Sender: FDA-Public Use
  Company Number: 2004-116351-NL

PATIENT
  Age: 50 Year
  Sex: Female

DRUGS (1)
  1. MARVELON [Suspect]
     Indication: CONTRACEPTION
     Dosage: 1 DF
     Route: 048
     Dates: start: 19840903, end: 20040220

REACTIONS (1)
  - PULMONARY EMBOLISM [None]
